FAERS Safety Report 6327838-8 (Version None)
Quarter: 2009Q3

REPORT INFORMATION
  Report Type: 
  Country: None (occurrence: None)
  Receive Date: 20090824
  Receipt Date: 20090806
  Transmission Date: 20100115
  Serious: Yes (Hospitalization)
  Sender: FDA-Public Use
  Company Number: 1-19368358

PATIENT
  Age: 80 Year
  Sex: Female
  Weight: 83.8247 kg

DRUGS (7)
  1. WARFARIN SODIUM [Suspect]
     Indication: PHLEBITIS
     Dosage: 1.5-2MG DAILY, ORAL
     Route: 048
     Dates: start: 20090501
  2. WARFARIN SODIUM [Suspect]
     Indication: PULMONARY THROMBOSIS
     Dosage: 1.5-2MG DAILY, ORAL
     Route: 048
     Dates: start: 20090501
  3. METOCLOP (METOCLOPROMIDE) [Concomitant]
  4. NOVO-ALENDRONATE [Concomitant]
  5. GLICLAZIDE [Concomitant]
  6. EURO FERROUS [Concomitant]
  7. D-VI-SOL (VITAMIN D SUPPLEMENT) [Concomitant]

REACTIONS (7)
  - ABSCESS INTESTINAL [None]
  - COLON CANCER [None]
  - COLONIC POLYP [None]
  - DECREASED APPETITE [None]
  - INTERNATIONAL NORMALISED RATIO INCREASED [None]
  - NAUSEA [None]
  - VOMITING [None]
